FAERS Safety Report 9379210 (Version 1)
Quarter: 2013Q2

REPORT INFORMATION
  Report Type: Spontaneous
  Country: GB (occurrence: None)
  Receive Date: 20130524
  Receipt Date: 20130524
  Transmission Date: 20140414
  Serious: Yes (Other)
  Sender: FDA-Public Use
  Company Number: HRA-CDB20120090

PATIENT
  Age: 15 Year
  Sex: Female
  Weight: 48 kg

DRUGS (1)
  1. ELLAONE 30 MG TABLET (ELLAONE) (ULIPRISTAL ACETATE) [Suspect]
     Dates: start: 20120215, end: 20120215

REACTIONS (2)
  - Pregnancy on oral contraceptive [None]
  - Abortion induced [None]
